FAERS Safety Report 6506759-1 (Version None)
Quarter: 2009Q4

REPORT INFORMATION
  Report Type: 
  Country: None (occurrence: None)
  Receive Date: 20091221
  Receipt Date: 20091210
  Transmission Date: 20100525
  Serious: Yes (Other)
  Sender: FDA-Public Use
  Company Number: JP-ROCHE-675251

PATIENT
  Age: 20 Year
  Sex: Male
  Weight: 70 kg

DRUGS (5)
  1. DENOSINE IV [Suspect]
     Indication: CYTOMEGALOVIRUS DUODENITIS
     Dosage: FORM: INFUSION
     Route: 042
     Dates: start: 20080101
  2. DOXIL [Suspect]
     Indication: KAPOSI'S SARCOMA AIDS RELATED
     Dosage: EVERY TWO TO THREE WEEKS
     Route: 065
     Dates: start: 20080208
  3. ZERIT [Suspect]
     Indication: KAPOSI'S SARCOMA AIDS RELATED
     Route: 065
     Dates: start: 20080201
  4. EPIVIR [Suspect]
     Indication: KAPOSI'S SARCOMA AIDS RELATED
     Route: 065
     Dates: start: 20080201
  5. KALETRA [Suspect]
     Indication: KAPOSI'S SARCOMA AIDS RELATED
     Route: 065
     Dates: start: 20080201

REACTIONS (1)
  - BONE MARROW FAILURE [None]
